FAERS Safety Report 15542023 (Version 4)
Quarter: 2019Q2

REPORT INFORMATION
  Report Type: Spontaneous
  Country: DE (occurrence: DE)
  Receive Date: 20181023
  Receipt Date: 20190401
  Transmission Date: 20190711
  Serious: Yes (Other)
  Sender: FDA-Public Use
  Company Number: DE-GLAXOSMITHKLINE-DE2018192340

PATIENT
  Age: 89 Year
  Sex: Female
  Weight: 43.6 kg

DRUGS (16)
  1. DULOXETINE. [Interacting]
     Active Substance: DULOXETINE
     Indication: DEPRESSION
     Dosage: 30 MG, QD (EVERY MORNING)
     Route: 065
  2. TILIDINE [Interacting]
     Active Substance: TILIDINE
     Indication: ARTHRALGIA
     Dosage: 50/4 MG EVERY MORNING AND EVENING
     Route: 065
  3. SPIRONOLACTONE. [Concomitant]
     Active Substance: SPIRONOLACTONE
     Indication: PRODUCT USED FOR UNKNOWN INDICATION
     Dosage: 50 MG, QD (EVERY MORNING)
     Route: 065
  4. RAMIPRIL. [Suspect]
     Active Substance: RAMIPRIL
     Indication: CARDIAC FAILURE
     Dosage: 5 MG, QD (EVERY MORNING)
     Route: 065
  5. METAMIZOLE [Concomitant]
     Active Substance: METAMIZOLE
     Indication: PRODUCT USED FOR UNKNOWN INDICATION
     Dosage: 500 MG/ML, MAX. 90 DROPS/DAY
     Route: 065
  6. CARVEDILOL. [Suspect]
     Active Substance: CARVEDILOL
     Dosage: 6.25 MG, BID (EVERY MORNING AND EVENING)
     Route: 065
  7. PANTOPRAZOLE [Concomitant]
     Active Substance: PANTOPRAZOLE
     Indication: PROPHYLAXIS
     Dosage: 20 MG, QD (EVERY MORNING)
     Route: 065
  8. MIRTAZAPINE. [Interacting]
     Active Substance: MIRTAZAPINE
     Indication: DEPRESSION
     Dosage: 15 MG, QD (EVERY MORNING)
     Route: 048
  9. DIGITOXIN [Concomitant]
     Active Substance: DIGITOXIN
     Indication: PRODUCT USED FOR UNKNOWN INDICATION
     Dosage: 0.07 MG, QD (EVERY MORNING)
     Route: 065
  10. CARVEDILOL. [Suspect]
     Active Substance: CARVEDILOL
     Dosage: 12.5 MG, QD
     Route: 065
  11. TORASEMIDE [Suspect]
     Active Substance: TORSEMIDE
     Indication: PRODUCT USED FOR UNKNOWN INDICATION
     Dosage: 10 MG, QD (EVERY MORNING)
     Route: 065
  12. DICLOFENAC [Suspect]
     Active Substance: DICLOFENAC
     Indication: CARDIAC FAILURE
     Dosage: 75 MG, QD (EXTENDED RELEASE) (EVERY MORNING)
     Route: 065
  13. CARVEDILOL. [Suspect]
     Active Substance: CARVEDILOL
     Indication: CARDIAC FAILURE
     Dosage: 6.25 MG, QD
     Route: 065
  14. OXAZEPAM. [Interacting]
     Active Substance: OXAZEPAM
     Indication: SLEEP DISORDER
     Dosage: 10 MG, QD (EVERY NIGHT)
     Route: 065
  15. TILIDINE [Interacting]
     Active Substance: TILIDINE
     Indication: BACK PAIN
     Dosage: 1 DF, BID
     Route: 048
  16. DIGITOXIN [Concomitant]
     Active Substance: DIGITOXIN
     Dosage: 0.14 MG, UNK
     Route: 065

REACTIONS (3)
  - Contraindicated product administered [Unknown]
  - Renal impairment [Unknown]
  - Drug interaction [Unknown]
